FAERS Safety Report 18313248 (Version 5)
Quarter: 2021Q1

REPORT INFORMATION
  Report Type: Report from Study
  Country: KR (occurrence: KR)
  Receive Date: 20200925
  Receipt Date: 20210331
  Transmission Date: 20210419
  Serious: Yes (Death, Life-Threatening, Hospitalization)
  Sender: FDA-Public Use
  Company Number: KR-EISAI MEDICAL RESEARCH-EC-2020-081044

PATIENT
  Age: 62 Year
  Sex: Female
  Weight: 77.3 kg

DRUGS (28)
  1. DESOWEN LOTION [Concomitant]
     Indication: URTICARIA
     Route: 061
     Dates: start: 20200810, end: 20200814
  2. STILNOX [Concomitant]
     Active Substance: ZOLPIDEM TARTRATE
     Indication: INSOMNIA
     Route: 048
     Dates: start: 20200908, end: 20201109
  3. POLYBUTINE [Concomitant]
     Indication: IRRITABLE BOWEL SYNDROME
     Route: 048
     Dates: start: 20200909, end: 20200927
  4. DUPHALAC?EASY SYR [Concomitant]
     Active Substance: LACTULOSE
     Indication: CONSTIPATION
     Route: 048
     Dates: start: 20200907, end: 20200908
  5. LIPITOR TAB [Concomitant]
     Indication: DYSLIPIDAEMIA
     Route: 048
     Dates: start: 20200722, end: 20201127
  6. HUONS DEXAMETHASONE DISODIUM PHOSPHATE INJ [Concomitant]
     Indication: URTICARIA
     Route: 041
     Dates: start: 20200810, end: 20200810
  7. ALDACTONE FILM COATED TAB [Concomitant]
     Indication: OEDEMA
     Route: 048
     Dates: start: 20200831, end: 20210119
  8. LANSTON LFDT [Concomitant]
     Active Substance: LANSOPRAZOLE
     Indication: PROPHYLAXIS
     Route: 048
     Dates: start: 20200917, end: 20201130
  9. LAMINA?G [Concomitant]
     Indication: PROPHYLAXIS
     Route: 048
     Dates: start: 20200928, end: 20201109
  10. LENVIMA [Suspect]
     Active Substance: LENVATINIB
     Indication: HEPATOCELLULAR CARCINOMA
     Route: 048
     Dates: start: 20200722, end: 20200907
  11. OLMETEC TAB [Concomitant]
     Indication: HYPERTENSION
     Route: 048
     Dates: start: 20200722, end: 20200804
  12. GASTIIN CR [Concomitant]
     Indication: PROPHYLAXIS
     Route: 048
     Dates: start: 20200928, end: 20201208
  13. PARAMACET TAB [Concomitant]
     Indication: PROPHYLAXIS
     Route: 048
     Dates: start: 20201027, end: 20201109
  14. GASMOTIN [Concomitant]
     Active Substance: MOSAPRIDE CITRATE
     Indication: PROPHYLAXIS
     Route: 048
     Dates: start: 20200917, end: 20200927
  15. TRIDOL [Concomitant]
     Active Substance: TRAMADOL HYDROCHLORIDE
     Indication: LUMBAR VERTEBRAL FRACTURE
     Route: 048
     Dates: start: 20200919, end: 20200927
  16. LENVIMA [Suspect]
     Active Substance: LENVATINIB
     Route: 048
     Dates: start: 20200908, end: 20201119
  17. IRCODON TAB [Concomitant]
     Indication: BACK PAIN
     Route: 048
     Dates: start: 20200807, end: 20200820
  18. NEURONTIN CAP [Concomitant]
     Indication: BACK PAIN
     Route: 048
     Dates: start: 20200807, end: 20200820
  19. MAGMIL TAB [Concomitant]
     Indication: PROPHYLAXIS
     Route: 048
     Dates: start: 20201013, end: 20210111
  20. ADIPAM TAB [Concomitant]
     Indication: URTICARIA
     Route: 048
     Dates: start: 20200810, end: 20200814
  21. MUTERAN CAP [Concomitant]
     Indication: PROPHYLAXIS
     Route: 048
     Dates: start: 20200831, end: 20200916
  22. SEVIKAR [Concomitant]
     Active Substance: AMLODIPINE BESYLATE\OLMESARTAN MEDOXOMIL
     Indication: HYPERTENSION
     Dosage: 1 TABLET
     Route: 048
     Dates: start: 20200805, end: 20201105
  23. VEMLIDY [Concomitant]
     Active Substance: TENOFOVIR ALAFENAMIDE FUMARATE
     Indication: CHRONIC HEPATITIS B
     Route: 048
     Dates: start: 20200728, end: 20210121
  24. DUOLAX TAB [Concomitant]
     Indication: CONSTIPATION
     Route: 048
     Dates: start: 20200831, end: 20200906
  25. MEGESIA SUSP [Concomitant]
     Indication: DECREASED APPETITE
     Route: 048
     Dates: start: 20200831, end: 20201120
  26. LASIX TAB [Concomitant]
     Indication: OEDEMA
     Route: 048
     Dates: start: 20200831, end: 20210121
  27. RAMNOS [Concomitant]
     Indication: IRRITABLE BOWEL SYNDROME
     Route: 048
     Dates: start: 20200911, end: 20200916
  28. PLETAAL TAB [Concomitant]
     Indication: CEREBRAL ARTERY STENOSIS
     Route: 048
     Dates: start: 20190514, end: 20201201

REACTIONS (4)
  - Metastasis [Fatal]
  - Abdominal pain upper [Recovering/Resolving]
  - Gastritis [Recovered/Resolved]
  - Oedema [Recovering/Resolving]

NARRATIVE: CASE EVENT DATE: 202008
